FAERS Safety Report 5000908-2 (Version None)
Quarter: 2006Q2

REPORT INFORMATION
  Report Type: 
  Country: None (occurrence: None)
  Receive Date: 20060512
  Receipt Date: 20060228
  Transmission Date: 20061013
  Serious: No
  Sender: FDA-Public Use
  Company Number: US-GLAXOSMITHKLINE-A0595525A

PATIENT
  Age: 68 Year
  Sex: Female

DRUGS (4)
  1. NABUMETONE [Suspect]
     Indication: ARTHRITIS
     Dosage: 750MG TWICE PER DAY
     Route: 048
     Dates: start: 20050901, end: 20051201
  2. ACCOLATE [Concomitant]
  3. TAMOXIFEN CITRATE [Concomitant]
  4. AMBIEN [Concomitant]

REACTIONS (2)
  - ARTHROPATHY [None]
  - DRUG INEFFECTIVE [None]
